FAERS Safety Report 26070523 (Version 2)
Quarter: 2025Q4

REPORT INFORMATION
  Report Type: Report from Study
  Country: US (occurrence: US)
  Receive Date: 20251120
  Receipt Date: 20251121
  Transmission Date: 20260118
  Serious: Yes (Death)
  Sender: ROCHE
  Company Number: US-ROCHE-10000440098

PATIENT
  Age: 69 Year
  Sex: Female

DRUGS (1)
  1. COTELLIC [Suspect]
     Active Substance: COBIMETINIB FUMARATE
     Indication: Pancreatic carcinoma
     Dosage: MORE DOSAGE INFORMATION: TAKE 3 TABLET(S) BY MOUTH DAILY FOR 21 DAY(S) ON AND THEN 7 DAY(S) OFF.?60
     Route: 048

REACTIONS (2)
  - Death [Fatal]
  - Off label use [Unknown]
